FAERS Safety Report 7467790-5 (Version None)
Quarter: 2011Q2

REPORT INFORMATION
  Report Type: 
  Country: None (occurrence: None)
  Receive Date: 20110509
  Receipt Date: 20110104
  Transmission Date: 20111010
  Serious: No
  Sender: FDA-Public Use
  Company Number: US-ALEXION-A201100012

PATIENT
  Sex: Female
  Weight: 46.259 kg

DRUGS (1)
  1. SOLIRIS [Suspect]
     Indication: PAROXYSMAL NOCTURNAL HAEMOGLOBINURIA
     Dosage: UNK
     Route: 042

REACTIONS (8)
  - WEIGHT DECREASED [None]
  - MALAISE [None]
  - DECREASED APPETITE [None]
  - HYPERSOMNIA [None]
  - FATIGUE [None]
  - PAIN [None]
  - HEADACHE [None]
  - NAUSEA [None]
